FAERS Safety Report 5738531-4 (Version None)
Quarter: 2008Q2

REPORT INFORMATION
  Report Type: 
  Country: None (occurrence: None)
  Receive Date: 20080513
  Receipt Date: 20080422
  Transmission Date: 20081010
  Serious: Yes (Death, Hospitalization)
  Sender: FDA-Public Use
  Company Number: 6041467

PATIENT
  Age: 68 Year
  Sex: Male

DRUGS (15)
  1. BISOPROLOL FUMARATE [Suspect]
     Indication: ATRIAL FIBRILLATION
     Dosage: 2.5 MG (2.5 MG, 1-0-0)
     Dates: start: 20080101
  2. DEXAMETHASONE [Suspect]
     Indication: DRUG USE FOR UNKNOWN INDICATION
     Dosage: 6 MG (2 MG, 3 IN 1 D); 2 MG (2 MG, 1-0-0); 0.5 MG (0.5 MG, 1-0-0)
     Dates: start: 20071105
  3. TEMODAL [Suspect]
     Indication: CHEMOTHERAPY
     Dosage: (75 MG/M2); (200 MG/M2);
     Dates: start: 20071126, end: 20071224
  4. TEMODAL [Suspect]
     Indication: RADIOTHERAPY
     Dosage: (75 MG/M2); (200 MG/M2);
     Dates: start: 20071126, end: 20071224
  5. TEMODAL [Suspect]
     Indication: CHEMOTHERAPY
     Dosage: (75 MG/M2); (200 MG/M2);
     Dates: start: 20080327, end: 20080331
  6. TEMODAL [Suspect]
     Indication: RADIOTHERAPY
     Dosage: (75 MG/M2); (200 MG/M2);
     Dates: start: 20080327, end: 20080331
  7. DIPYRONE TAB [Suspect]
     Indication: PAIN
     Dosage: 20 DRIPS AS NEED (20 DTT)
  8. HYDROCHLOROTHIAZIDE [Suspect]
     Indication: CARDIAC FAILURE
     Dosage: 25 MG (25 MG, 1-0-0)
  9. UNAT 10 MG (10 MG) (TORASEMIDE) [Suspect]
     Indication: CARDIAC FAILURE
     Dosage: 20 MG (10 MG, 2 IN 1 D); 10 MG (10 MG, 1-0-0)
     Dates: start: 20071211
  10. UNAT 10 MG (10 MG) (TORASEMIDE) [Suspect]
     Indication: OEDEMA PERIPHERAL
     Dosage: 20 MG (10 MG, 2 IN 1 D); 10 MG (10 MG, 1-0-0)
     Dates: start: 20071211
  11. UNAT 10 MG (10 MG) (TORASEMIDE) [Suspect]
     Indication: CARDIAC FAILURE
     Dosage: 20 MG (10 MG, 2 IN 1 D); 10 MG (10 MG, 1-0-0)
     Dates: start: 20080411
  12. UNAT 10 MG (10 MG) (TORASEMIDE) [Suspect]
     Indication: OEDEMA PERIPHERAL
     Dosage: 20 MG (10 MG, 2 IN 1 D); 10 MG (10 MG, 1-0-0)
     Dates: start: 20080411
  13. LISINOPRIL [Suspect]
     Indication: HYPERTENSION
     Dosage: 20 MG (20 MG, 2-0-0)
  14. NEXIUM [Suspect]
     Indication: PROPHYLAXIS
     Dosage: 40 MG (40 MG, 1 IN 1 D);
  15. FELODIPINE 5 MG (5 MG) (FELODIPINE) [Concomitant]

REACTIONS (8)
  - BRADYPHRENIA [None]
  - CANDIDIASIS [None]
  - CARDIAC FAILURE [None]
  - DIABETES MELLITUS INADEQUATE CONTROL [None]
  - FATIGUE [None]
  - HYPOKALAEMIA [None]
  - MOBILITY DECREASED [None]
  - MUSCULAR WEAKNESS [None]
